FAERS Safety Report 24206110 (Version 2)
Quarter: 2024Q3

REPORT INFORMATION
  Report Type: Spontaneous
  Country: PT (occurrence: PT)
  Receive Date: 20240813
  Receipt Date: 20240826
  Transmission Date: 20241017
  Serious: Yes (Death)
  Sender: GILEAD
  Company Number: None

PATIENT
  Age: 91 Year
  Sex: Male

DRUGS (13)
  1. VEKLURY [Suspect]
     Active Substance: REMDESIVIR
     Indication: COVID-19
     Dosage: 200 MG FIRST DOSE; 100 MG REMAINING 4 DOSES
     Route: 042
     Dates: start: 20220110, end: 20220114
  2. SODIUM CHLORIDE [Concomitant]
     Active Substance: SODIUM CHLORIDE
  3. DIGOXIN [Concomitant]
     Active Substance: DIGOXIN
  4. OXYGEN [Concomitant]
     Active Substance: OXYGEN
  5. METHYLPREDNISOLONE [Concomitant]
     Active Substance: METHYLPREDNISOLONE
  6. PHENYTOIN [Concomitant]
     Active Substance: PHENYTOIN
  7. PANTOPRAZOLE [Concomitant]
     Active Substance: PANTOPRAZOLE
  8. ALLOPURINOL [Concomitant]
     Active Substance: ALLOPURINOL
  9. LEVETIRACETAM [Concomitant]
     Active Substance: LEVETIRACETAM
  10. ENOXAPARIN [Concomitant]
     Active Substance: ENOXAPARIN
  11. BECLOMETHASONE DIPROPIONATE [Concomitant]
     Active Substance: BECLOMETHASONE DIPROPIONATE
  12. FUROSEMIDE [Concomitant]
     Active Substance: FUROSEMIDE
  13. IPRATROPIUM BROMIDE [Concomitant]
     Active Substance: IPRATROPIUM BROMIDE\IPRATROPIUM BROMIDE ANHYDROUS

REACTIONS (1)
  - Drug ineffective [Fatal]

NARRATIVE: CASE EVENT DATE: 20220118
